FAERS Safety Report 19620954 (Version 5)
Quarter: 2024Q1

REPORT INFORMATION
  Report Type: Spontaneous
  Country: US (occurrence: US)
  Receive Date: 20210728
  Receipt Date: 20240301
  Transmission Date: 20240410
  Serious: Yes (Hospitalization, Other)
  Sender: FDA-Public Use
  Company Number: US-PFIZER INC-202100917253

PATIENT
  Age: 63 Year
  Sex: Female

DRUGS (1)
  1. ENBREL [Suspect]
     Active Substance: ETANERCEPT
     Indication: Product used for unknown indication
     Dosage: UNK
     Route: 065
     Dates: start: 20100115, end: 201004

REACTIONS (10)
  - Asthma [Unknown]
  - Respiratory arrest [Not Recovered/Not Resolved]
  - Respiratory disorder [Unknown]
  - Respiratory distress [Not Recovered/Not Resolved]
  - Eosinophilia [Unknown]
  - Blood immunoglobulin E decreased [Unknown]
  - Sjogren^s syndrome [Unknown]
  - Dry eye [Unknown]
  - Dry mouth [Unknown]
  - Drug hypersensitivity [Not Recovered/Not Resolved]
